FAERS Safety Report 24332802 (Version 2)
Quarter: 2024Q4

REPORT INFORMATION
  Report Type: Spontaneous
  Country: US (occurrence: US)
  Receive Date: 20240918
  Receipt Date: 20241108
  Transmission Date: 20250115
  Serious: Yes (Other)
  Sender: PFIZER
  Company Number: US-PFIZER INC-202400257413

PATIENT
  Sex: Female

DRUGS (1)
  1. ESTRING [Suspect]
     Active Substance: ESTRADIOL
     Dosage: EVERY 3 MONTHS

REACTIONS (4)
  - Malaise [Unknown]
  - Pain [Unknown]
  - Drug withdrawal syndrome [Unknown]
  - Device defective [Unknown]
